FAERS Safety Report 10095820 (Version 3)
Quarter: 2015Q3

REPORT INFORMATION
  Report Type: Spontaneous
  Country: US (occurrence: US)
  Receive Date: 20140422
  Receipt Date: 20150814
  Transmission Date: 20151125
  Serious: No
  Sender: FDA-Public Use
  Company Number: US-GILEAD-2013-0074417

PATIENT
  Age: 82 Year
  Sex: Female

DRUGS (1)
  1. LETAIRIS [Suspect]
     Active Substance: AMBRISENTAN
     Indication: PRODUCT USED FOR UNKNOWN INDICATION
     Dosage: 5 MG, QD
     Dates: start: 20130309

REACTIONS (7)
  - Peripheral swelling [Unknown]
  - Musculoskeletal pain [Unknown]
  - Nausea [Unknown]
  - Feeling hot [Unknown]
  - Sinus congestion [Unknown]
  - Cough [Unknown]
  - Neck pain [Unknown]
